FAERS Safety Report 17699412 (Version 1)
Quarter: 2020Q2

REPORT INFORMATION
  Report Type: Spontaneous
  Country: ES (occurrence: ES)
  Receive Date: 20200423
  Receipt Date: 20200423
  Transmission Date: 20200714
  Serious: Yes (Other)
  Sender: FDA-Public Use
  Company Number: ES-PFIZER INC-2020159505

PATIENT
  Age: 66 Year
  Sex: Male

DRUGS (1)
  1. ORFIDAL [Suspect]
     Active Substance: LORAZEPAM
     Indication: SLEEP DISORDER
     Dosage: 1 MG, UNK

REACTIONS (4)
  - Depressed mood [Unknown]
  - Drug tolerance [Unknown]
  - Anxiety [Unknown]
  - Feeling abnormal [Unknown]
